FAERS Safety Report 25981669 (Version 1)
Quarter: 2025Q4

REPORT INFORMATION
  Report Type: Spontaneous
  Country: EU (occurrence: EU)
  Receive Date: 20251031
  Receipt Date: 20251031
  Transmission Date: 20260117
  Serious: Yes (Hospitalization)
  Sender: ABBVIE
  Company Number: None

PATIENT
  Age: 51 Year
  Sex: Male
  Weight: 103 kg

DRUGS (1)
  1. RINVOQ [Suspect]
     Active Substance: UPADACITINIB
     Indication: Colitis ulcerative
     Dosage: 1D1
     Route: 048
     Dates: start: 20250419, end: 20250922

REACTIONS (1)
  - Osteonecrosis [Not Recovered/Not Resolved]
